FAERS Safety Report 8149247 (Version 3)
Quarter: 2013Q2

REPORT INFORMATION
  Report Type: Spontaneous
  Country: US (occurrence: US)
  Receive Date: 20110922
  Receipt Date: 20130514
  Transmission Date: 20140414
  Serious: Yes (Other)
  Sender: FDA-Public Use
  Company Number: US-ASTRAZENECA-2011SE12656

PATIENT
  Age: 48 Year
  Sex: Female

DRUGS (5)
  1. SEROQUEL [Suspect]
     Route: 048
  2. SEROQUEL [Suspect]
     Route: 048
     Dates: start: 20020927
  3. SEROQUEL [Suspect]
     Route: 048
     Dates: start: 20020927
  4. TOPAMAX [Concomitant]
     Dates: start: 20020927
  5. EFFEXOR XR [Concomitant]
     Dates: start: 20020927

REACTIONS (3)
  - Pancreatitis [Unknown]
  - Diabetic coma [Unknown]
  - Type 2 diabetes mellitus [Unknown]
